FAERS Safety Report 11143482 (Version 1)
Quarter: 2015Q2

REPORT INFORMATION
  Report Type: Spontaneous
  Country: US (occurrence: None)
  Receive Date: 20150527
  Receipt Date: 20150527
  Transmission Date: 20150821
  Serious: No
  Sender: FDA-Public Use
  Company Number: None

PATIENT
  Age: 61 Year
  Sex: Female

DRUGS (1)
  1. GLEEVEC [Suspect]
     Active Substance: IMATINIB MESYLATE
     Dates: start: 20150526

REACTIONS (5)
  - Weight increased [None]
  - Swelling [None]
  - Swelling face [None]
  - Diarrhoea [None]
  - Fatigue [None]

NARRATIVE: CASE EVENT DATE: 20150526
